FAERS Safety Report 7455739-0 (Version None)
Quarter: 2011Q2

REPORT INFORMATION
  Report Type: 
  Country: None (occurrence: None)
  Receive Date: 20110503
  Receipt Date: 20110428
  Transmission Date: 20111010
  Serious: Yes (Death)
  Sender: FDA-Public Use
  Company Number: US-ASTRAZENECA-2011SE24813

PATIENT
  Age: 76 Year
  Sex: Female

DRUGS (1)
  1. MERREM [Suspect]
     Route: 042

REACTIONS (1)
  - CARDIAC DISORDER [None]
